FAERS Safety Report 22214579 (Version 1)
Quarter: 2023Q2

REPORT INFORMATION
  Report Type: Spontaneous
  Country: CN (occurrence: CN)
  Receive Date: 20230415
  Receipt Date: 20230415
  Transmission Date: 20230722
  Serious: Yes (Other)
  Sender: FDA-Public Use
  Company Number: CN-Accord-308111

PATIENT
  Age: 35 Year
  Sex: Female

DRUGS (4)
  1. FLUOROURACIL [Suspect]
     Active Substance: FLUOROURACIL
     Indication: Colorectal cancer metastatic
     Dosage: CUMULATIVE DOSE TO FIRST REACTION: 2 CYCLICAL
     Dates: start: 20211001, end: 2021
  2. OXALIPLATIN [Suspect]
     Active Substance: OXALIPLATIN
     Indication: Colorectal cancer metastatic
     Dosage: CUMULATIVE DOSE TO FIRST REACTION: 2 CYCLICAL
     Dates: start: 20211001, end: 2021
  3. LEUCOVORIN [Suspect]
     Active Substance: LEUCOVORIN
     Indication: Colorectal cancer metastatic
     Dosage: CUMULATIVE DOSE TO FIRST REACTION: 2 CYCLICAL
     Dates: start: 20211001, end: 2021
  4. BEVACIZUMAB [Suspect]
     Active Substance: BEVACIZUMAB
     Indication: Colorectal cancer metastatic
     Dosage: CUMULATIVE DOSE TO FIRST REACTION: 2 CYCLICAL
     Dates: start: 20211001, end: 2021

REACTIONS (1)
  - Interstitial lung disease [Unknown]

NARRATIVE: CASE EVENT DATE: 20210101
